FAERS Safety Report 9594312 (Version 2)
Quarter: 2013Q4

REPORT INFORMATION
  Report Type: Spontaneous
  Country: IT (occurrence: IT)
  Receive Date: 20131004
  Receipt Date: 20131010
  Transmission Date: 20140711
  Serious: Yes (Life-Threatening)
  Sender: FDA-Public Use
  Company Number: IT-ROCHE-1284242

PATIENT
  Sex: Male

DRUGS (1)
  1. RITUXIMAB [Suspect]
     Indication: GRANULOMATOSIS WITH POLYANGIITIS
     Dosage: DOUBLE DOSE AT A 15-DAY INTERVALS
     Route: 042

REACTIONS (2)
  - Cardiac arrest [Recovering/Resolving]
  - Epilepsy [Recovering/Resolving]
